FAERS Safety Report 16282340 (Version 7)
Quarter: 2021Q2

REPORT INFORMATION
  Report Type: Spontaneous
  Country: US (occurrence: US)
  Receive Date: 20190507
  Receipt Date: 20210511
  Transmission Date: 20210716
  Serious: Yes (Disabling, Other)
  Sender: FDA-Public Use
  Company Number: US-PFIZER INC-2019167682

PATIENT
  Age: 62 Year
  Sex: Female
  Weight: 58.06 kg

DRUGS (1)
  1. PREMARIN [Suspect]
     Active Substance: ESTROGENS, CONJUGATED
     Indication: HOT FLUSH
     Dosage: 0.3 MG (1 TABLET), DAILY
     Route: 048

REACTIONS (7)
  - Pain [Unknown]
  - Frustration tolerance decreased [Unknown]
  - Osteoarthritis [Unknown]
  - Anger [Unknown]
  - Fatigue [Unknown]
  - Osteoporosis [Unknown]
  - Condition aggravated [Unknown]
